FAERS Safety Report 5388446-9 (Version None)
Quarter: 2007Q3

REPORT INFORMATION
  Report Type: 
  Country: None (occurrence: None)
  Receive Date: 20070716
  Receipt Date: 20070705
  Transmission Date: 20080115
  Serious: Yes (Hospitalization, Other)
  Sender: FDA-Public Use
  Company Number: GB-ROCHE-500091

PATIENT
  Age: 45 Year
  Sex: Female
  Weight: 60 kg

DRUGS (4)
  1. PEG-INTERFERON ALFA 2A (RO 25-8310) [Suspect]
     Indication: CHRONIC MYELOID LEUKAEMIA
     Route: 058
     Dates: end: 20070427
  2. IMATINIB MESYLATE [Suspect]
     Indication: CHRONIC MYELOID LEUKAEMIA
     Route: 048
     Dates: end: 20070427
  3. IMATINIB MESYLATE [Suspect]
     Route: 048
     Dates: start: 20070525, end: 20070608
  4. PARACETAMOL [Concomitant]
     Route: 048
     Dates: end: 20070427

REACTIONS (2)
  - CHILLS [None]
  - HEPATOTOXICITY [None]
